FAERS Safety Report 7878018-6 (Version None)
Quarter: 2011Q4

REPORT INFORMATION
  Report Type: 
  Country: None (occurrence: None)
  Receive Date: 20111031
  Receipt Date: 20111020
  Transmission Date: 20120403
  Serious: No
  Sender: FDA-Public Use
  Company Number: US-B.I. PHARMACEUTICALS,INC./RIDGEFIELD-2011-BP-24654BP

PATIENT
  Age: 81 Year
  Sex: Female

DRUGS (7)
  1. PREDNISONE [Concomitant]
     Indication: ASTHMA
  2. ASPIRIN [Concomitant]
  3. AGGRENOX [Suspect]
     Route: 048
     Dates: start: 20110601
  4. COZAAR [Concomitant]
     Indication: HYPERTENSION
  5. LASIX [Concomitant]
  6. AGGRENOX [Suspect]
     Indication: CONCUSSION
     Route: 048
     Dates: start: 20110501, end: 20110601
  7. VYTORIN [Concomitant]
     Indication: BLOOD CHOLESTEROL INCREASED

REACTIONS (2)
  - FUNGAL INFECTION [None]
  - ASTHENIA [None]
